FAERS Safety Report 13374815 (Version 1)
Quarter: 2017Q1

REPORT INFORMATION
  Report Type: Spontaneous
  Country: GB (occurrence: GB)
  Receive Date: 20170327
  Receipt Date: 20170327
  Transmission Date: 20170429
  Serious: Yes (Life-Threatening, Hospitalization, Disabling, Other)
  Sender: FDA-Public Use
  Company Number: GB-SA-2017SA049260

PATIENT
  Age: 84 Year
  Sex: Male
  Weight: 119.1 kg

DRUGS (4)
  1. ETOPOSIDE. [Concomitant]
     Active Substance: ETOPOSIDE
     Indication: NEUROENDOCRINE CARCINOMA OF THE SKIN
     Route: 065
     Dates: start: 201612
  2. CLEXANE [Suspect]
     Active Substance: ENOXAPARIN SODIUM
     Indication: PULMONARY EMBOLISM
     Route: 058
     Dates: start: 201609, end: 20170222
  3. CARBOPLATIN. [Concomitant]
     Active Substance: CARBOPLATIN
     Indication: NEUROENDOCRINE CARCINOMA OF THE SKIN
     Route: 065
     Dates: start: 201612
  4. AVELUMAB [Suspect]
     Active Substance: AVELUMAB
     Indication: NEUROENDOCRINE CARCINOMA OF THE SKIN
     Route: 065
     Dates: start: 20170213, end: 20170213

REACTIONS (4)
  - Acute prerenal failure [Unknown]
  - Neurological symptom [Unknown]
  - Retroperitoneal haemorrhage [Not Recovered/Not Resolved]
  - Haemodynamic instability [Unknown]

NARRATIVE: CASE EVENT DATE: 20170222
